FAERS Safety Report 15993373 (Version 1)
Quarter: 2019Q1

REPORT INFORMATION
  Report Type: Report from Study
  Country: GB (occurrence: GB)
  Receive Date: 20190222
  Receipt Date: 20190222
  Transmission Date: 20190418
  Serious: Yes (Other)
  Sender: FDA-Public Use
  Company Number: PHHY2019GB038623

PATIENT
  Sex: Female

DRUGS (1)
  1. COSENTYX [Suspect]
     Active Substance: SECUKINUMAB
     Indication: PSORIATIC ARTHROPATHY
     Dosage: 300 MG, QW (WEEK 0 300MG LOADING DOSES)
     Route: 058
     Dates: start: 20190208

REACTIONS (3)
  - Decreased appetite [Unknown]
  - Feeling drunk [Unknown]
  - Nausea [Unknown]
